FAERS Safety Report 18939697 (Version 2)
Quarter: 2021Q1

REPORT INFORMATION
  Report Type: Spontaneous
  Country: US (occurrence: US)
  Receive Date: 20210225
  Receipt Date: 20210318
  Transmission Date: 20210420
  Serious: No
  Sender: FDA-Public Use
  Company Number: US-ASTRAZENECA-2021A019836

PATIENT
  Sex: Female

DRUGS (1)
  1. SYMBICORT [Suspect]
     Active Substance: BUDESONIDE\FORMOTEROL FUMARATE DIHYDRATE
     Dosage: 80MCG/4.5MCG, TWO TIMES A DAY
     Route: 055

REACTIONS (5)
  - Pain in extremity [Unknown]
  - Drug delivery system issue [Unknown]
  - Feeling abnormal [Unknown]
  - Product use issue [Not Recovered/Not Resolved]
  - Wrong technique in device usage process [Unknown]
